FAERS Safety Report 7272271-8 (Version None)
Quarter: 2010Q4

REPORT INFORMATION
  Report Type: 
  Country: None (occurrence: None)
  Receive Date: 20101213
  Receipt Date: 20100111
  Transmission Date: 20110411
  Serious: Yes (Other)
  Sender: FDA-Public Use
  Company Number: JHP201000031

PATIENT
  Age: 37 Year
  Sex: Female

DRUGS (2)
  1. PITOCIN [Suspect]
     Indication: LABOUR INDUCTION
     Dosage: 2 ML/HR UP TO 200 ML/HR, INTRAVENOUS, 4 ML/HR, UP TO 15 MG/HR, INTRAVENOUS
     Route: 042
     Dates: start: 20091201, end: 20091201
  2. PITOCIN [Suspect]
     Indication: LABOUR INDUCTION
     Dosage: 2 ML/HR UP TO 200 ML/HR, INTRAVENOUS, 4 ML/HR, UP TO 15 MG/HR, INTRAVENOUS
     Route: 042
     Dates: start: 20091201, end: 20091201

REACTIONS (8)
  - ACCIDENTAL OVERDOSE [None]
  - BACK PAIN [None]
  - BLOOD PRESSURE INCREASED [None]
  - DIPLOPIA [None]
  - DIZZINESS [None]
  - HEADACHE [None]
  - MEDICATION ERROR [None]
  - UTERINE HYPERTONUS [None]
